APPROVED DRUG PRODUCT: DUVYZAT
Active Ingredient: GIVINOSTAT HYDROCHLORIDE
Strength: EQ 8.86MG BASE/ML
Dosage Form/Route: SUSPENSION;ORAL
Application: N217865 | Product #001
Applicant: ITALFARMACO SPA
Approved: Mar 21, 2024 | RLD: Yes | RS: Yes | Type: RX

PATENTS:
Patent 9421184 | Expires: Feb 3, 2032
Patent 9867799 | Expires: Feb 3, 2032
Patent 10688047 | Expires: Oct 28, 2036
Patent 7329689 | Expires: Jan 15, 2027

EXCLUSIVITY:
Code: NCE | Date: Mar 21, 2029
Code: ODE-473 | Date: Mar 21, 2031